FAERS Safety Report 7458879-5 (Version None)
Quarter: 2011Q2

REPORT INFORMATION
  Report Type: 
  Country: None (occurrence: None)
  Receive Date: 20110504
  Receipt Date: 20110426
  Transmission Date: 20111010
  Serious: Yes (Other)
  Sender: FDA-Public Use
  Company Number: PHHY2011US24303

PATIENT
  Sex: Male

DRUGS (3)
  1. GLEEVEC [Suspect]
     Indication: CHRONIC MYELOID LEUKAEMIA
  2. LANTUS [Concomitant]
     Dosage: 30 UNITS
  3. NOVOLOG [Concomitant]
     Dosage: 5-10 UNITS

REACTIONS (3)
  - GLYCOSYLATED HAEMOGLOBIN DECREASED [None]
  - HYPOGLYCAEMIA [None]
  - BLOOD GLUCOSE DECREASED [None]
